FAERS Safety Report 4960371-4 (Version None)
Quarter: 2006Q1

REPORT INFORMATION
  Report Type: 
  Country: None (occurrence: None)
  Receive Date: 20060328
  Receipt Date: 20060314
  Transmission Date: 20060701
  Serious: Yes (Hospitalization)
  Sender: FDA-Public Use
  Company Number: DEU-2005-0001506

PATIENT
  Age: 69 Year
  Sex: Female
  Weight: 92 kg

DRUGS (6)
  1. OXYCODONE 10MG / NALOXONE 5MG (OXYCODONE HCL/ NALOXONE HCL CR TAB 10 [Suspect]
     Indication: BACK PAIN
     Dosage: 10 MG, BID, ORAL
     Route: 048
     Dates: start: 20050616, end: 20050620
  2. CARBAMAZEPINE [Concomitant]
  3. MOVICOL (MACROGOL, SODIUM CHLORIDE, POTASSIUM CHLORIDE, SODIUM BICARBO [Concomitant]
  4. ANTIEPILEPTICS [Concomitant]
  5. AMITRIPTYLINE (AMITRIPTYLINE) [Concomitant]
  6. .. [Concomitant]

REACTIONS (2)
  - APPENDICITIS [None]
  - GASTROINTESTINAL NECROSIS [None]
